FAERS Safety Report 10561584 (Version 2)
Quarter: 2014Q4

REPORT INFORMATION
  Report Type: Report from Study
  Country: NL (occurrence: NL)
  Receive Date: 20141103
  Receipt Date: 20141103
  Transmission Date: 20150529
  Serious: Yes (Hospitalization)
  Sender: FDA-Public Use
  Company Number: PHHO2012NL011247

PATIENT
  Age: 53 Year
  Sex: Male
  Weight: 69.9 kg

DRUGS (9)
  1. MYFORTIC [Concomitant]
     Active Substance: MYCOPHENOLATE SODIUM
     Indication: RENAL TRANSPLANT
     Dosage: 1140 MG, UNK
     Route: 065
     Dates: start: 20120515
  2. LANTUS [Concomitant]
     Active Substance: INSULIN GLARGINE
     Indication: DIABETES MELLITUS
     Dosage: 300 IU/L, UNK
     Route: 058
     Dates: start: 20120622
  3. PREDNISOLONE. [Suspect]
     Active Substance: PREDNISOLONE
     Indication: RENAL TRANSPLANT
     Dosage: 10 MG, UNK
     Route: 065
     Dates: start: 20120515
  4. ASCAL CARDIO [Concomitant]
     Active Substance: CARBASALATE
     Indication: THROMBOSIS PROPHYLAXIS
     Dosage: 100 MG, UNK
     Route: 065
     Dates: start: 20120515
  5. NOVORAPID [Concomitant]
     Active Substance: INSULIN ASPART
     Indication: DIABETES MELLITUS
     Dosage: 6.5 IU/L, UNK
     Route: 058
     Dates: start: 20120622
  6. COTRIMOXAZOL [Concomitant]
     Indication: ANTIBIOTIC PROPHYLAXIS
     Dosage: 720 MG, UNK
     Route: 065
     Dates: start: 20120515
  7. CERTICAN [Suspect]
     Active Substance: EVEROLIMUS
     Indication: RENAL TRANSPLANT
     Dosage: 1.5 MG, UNK
     Route: 048
     Dates: start: 20120716
  8. CEFTRIAXONE. [Concomitant]
     Active Substance: CEFTRIAXONE
     Indication: ANTIBIOTIC PROPHYLAXIS
     Dosage: 2000 MG, UNK
     Route: 042
     Dates: start: 20120730
  9. SELOKEEN [Concomitant]
     Active Substance: METOPROLOL
     Indication: BLOOD PRESSURE MANAGEMENT
     Dosage: 50 MG, UNK
     Route: 065
     Dates: start: 20120515

REACTIONS (6)
  - Hyponatraemia [Not Recovered/Not Resolved]
  - Acute kidney injury [Not Recovered/Not Resolved]
  - Pyelonephritis [Not Recovered/Not Resolved]
  - Hyperglycaemia [Not Recovered/Not Resolved]
  - Blood creatinine increased [Not Recovered/Not Resolved]
  - Hyperosmolar state [Not Recovered/Not Resolved]

NARRATIVE: CASE EVENT DATE: 20120730
